FAERS Safety Report 7257414-4 (Version None)
Quarter: 2011Q1

REPORT INFORMATION
  Report Type: 
  Country: None (occurrence: None)
  Receive Date: 20110129
  Receipt Date: 20100803
  Transmission Date: 20110831
  Serious: No
  Sender: FDA-Public Use
  Company Number: US-ABBOTT-10P-163-0661662-00

PATIENT
  Sex: Female
  Weight: 72.186 kg

DRUGS (1)
  1. HUMIRA [Suspect]
     Indication: RHEUMATOID ARTHRITIS
     Route: 058
     Dates: start: 20090101

REACTIONS (5)
  - INCORRECT DRUG ADMINISTRATION DURATION [None]
  - SWELLING [None]
  - SCOLIOSIS [None]
  - ARTHRALGIA [None]
  - RHEUMATOID ARTHRITIS [None]
